FAERS Safety Report 5132407-1 (Version None)
Quarter: 2006Q4

REPORT INFORMATION
  Report Type: 
  Country: None (occurrence: None)
  Receive Date: 20061017
  Receipt Date: 20061004
  Transmission Date: 20070319
  Serious: Yes (Hospitalization)
  Sender: FDA-Public Use
  Company Number: 230825

PATIENT
  Age: 26 Year
  Sex: Male

DRUGS (1)
  1. RITUXAN (RITUXIMAB) CONC FOR SOLUTION FOR INFUSION [Suspect]
     Indication: RHEUMATOID ARTHRITIS

REACTIONS (1)
  - NEUTROPENIA [None]
